FAERS Safety Report 8134620-8 (Version None)
Quarter: 2012Q1

REPORT INFORMATION
  Report Type: 
  Country: None (occurrence: None)
  Receive Date: 20120214
  Receipt Date: 20120209
  Transmission Date: 20120608
  Serious: Yes (Hospitalization, Other)
  Sender: FDA-Public Use
  Company Number: US-PFIZER INC-2011145146

PATIENT
  Sex: Male

DRUGS (1)
  1. CHANTIX [Suspect]
     Indication: SMOKING CESSATION THERAPY
     Dosage: STARTER PACK AND CONTINUING MONTH PACK (4 REFILLS)
     Dates: start: 20090117, end: 20090330

REACTIONS (4)
  - LOSS OF CONSCIOUSNESS [None]
  - VISION BLURRED [None]
  - CONVULSION [None]
  - DIZZINESS [None]
